FAERS Safety Report 21952335 (Version 1)
Quarter: 2023Q1

REPORT INFORMATION
  Report Type: Report from Study
  Country: MY (occurrence: MY)
  Receive Date: 20230203
  Receipt Date: 20230203
  Transmission Date: 20230417
  Serious: No
  Sender: FDA-Public Use
  Company Number: MY-EXELIXIS-CABO-22052147

PATIENT
  Sex: Male

DRUGS (1)
  1. CABOMETYX [Suspect]
     Active Substance: CABOZANTINIB S-MALATE
     Indication: Hepatocellular carcinoma
     Dosage: 40 MG, QD
     Route: 048
     Dates: start: 20220301

REACTIONS (2)
  - Ulcer [Unknown]
  - Palmar-plantar erythrodysaesthesia syndrome [Unknown]
